FAERS Safety Report 4629868-0 (Version None)
Quarter: 2005Q2

REPORT INFORMATION
  Report Type: 
  Country: None (occurrence: None)
  Receive Date: 20050407
  Receipt Date: 20050324
  Transmission Date: 20051028
  Serious: Yes (Death, Hospitalization, Other)
  Sender: FDA-Public Use
  Company Number: 2005044327

PATIENT
  Age: 81 Year
  Sex: Male
  Weight: 60 kg

DRUGS (9)
  1. CELEBREX [Suspect]
     Indication: OSTEOARTHRITIS
     Dosage: 200 MG (200 MG, 1 IN 1 D), ORAL
     Route: 048
     Dates: start: 20040421
  2. AMILORIDE HCL [Concomitant]
  3. BISOPROLOL (BISOPROLOL) [Concomitant]
  4. LYSINE (LYSINE) [Concomitant]
  5. FENOFIBRATE [Concomitant]
  6. BISOPROLOL FUMARATE [Concomitant]
  7. ACETYLSALICYLIC ACID SRT [Concomitant]
  8. AMILORIDE W/HYDROXYCHLOROTHIAZIDE [Concomitant]
  9. ACETAMINOPHEN [Concomitant]

REACTIONS (2)
  - CORONARY ARTERY DISEASE [None]
  - MYOCARDIAL INFARCTION [None]
